FAERS Safety Report 8798131 (Version 1)
Quarter: 2012Q4

REPORT INFORMATION
  Report Type: 
  Country: US (occurrence: US)
  Receive Date: 20120920
  Receipt Date: 20120920
  Transmission Date: 20130627
  Serious: No
  Sender: FDA-Public Use
  Company Number: US-009507513-1209USA006909

PATIENT
  Age: 16 Year
  Sex: Female

DRUGS (1)
  1. IMPLANON [Suspect]
     Indication: MENSTRUAL DISORDER
     Dosage: 1 DF, UNK
     Dates: start: 201104

REACTIONS (2)
  - Implant site bruising [Recovered/Resolved]
  - Amenorrhoea [Unknown]
